FAERS Safety Report 6769491-5 (Version None)
Quarter: 2010Q2

REPORT INFORMATION
  Report Type: 
  Country: None (occurrence: None)
  Receive Date: 20100615
  Receipt Date: 20100611
  Transmission Date: 20101027
  Serious: Yes (Hospitalization)
  Sender: FDA-Public Use
  Company Number: US-BRISTOL-MYERS SQUIBB COMPANY-15146160

PATIENT
  Age: 72 Year
  Sex: Female

DRUGS (1)
  1. IXEMPRA KIT [Suspect]

REACTIONS (2)
  - DIARRHOEA [None]
  - ELECTROLYTE IMBALANCE [None]
